FAERS Safety Report 14950456 (Version 2)
Quarter: 2018Q2

REPORT INFORMATION
  Report Type: Report from Study
  Country: None (occurrence: US)
  Receive Date: 20180530
  Receipt Date: 20180626
  Transmission Date: 20180711
  Serious: Yes (Hospitalization, Other)
  Sender: FDA-Public Use
  Company Number: US-ABBVIE-16K-163-1805314-00

PATIENT
  Sex: Female

DRUGS (4)
  1. HUMIRA [Suspect]
     Active Substance: ADALIMUMAB
     Route: 058
     Dates: start: 2018
  2. HUMIRA [Suspect]
     Active Substance: ADALIMUMAB
     Indication: PSORIASIS
     Route: 058
     Dates: start: 2016, end: 201701
  3. HUMIRA [Suspect]
     Active Substance: ADALIMUMAB
     Indication: PSORIATIC ARTHROPATHY
     Route: 058
     Dates: start: 2016, end: 2016
  4. HUMIRA [Suspect]
     Active Substance: ADALIMUMAB
     Dosage: DAY 1 LOADING DOSE
     Route: 058
     Dates: start: 20180517, end: 20180517

REACTIONS (22)
  - Paronychia [Recovered/Resolved]
  - Fatigue [Not Recovered/Not Resolved]
  - Hypertension [Unknown]
  - Drug resistance [Unknown]
  - Drug effect decreased [Not Recovered/Not Resolved]
  - Loss of personal independence in daily activities [Not Recovered/Not Resolved]
  - Chronic obstructive pulmonary disease [Unknown]
  - Osteonecrosis [Unknown]
  - Musculoskeletal stiffness [Unknown]
  - Electric injury [Unknown]
  - Arthralgia [Unknown]
  - Eyelids pruritus [Unknown]
  - Pruritus generalised [Unknown]
  - Joint swelling [Not Recovered/Not Resolved]
  - Joint stiffness [Not Recovered/Not Resolved]
  - Joint swelling [Unknown]
  - Dyspnoea [Not Recovered/Not Resolved]
  - Atrial fibrillation [Unknown]
  - Peripheral swelling [Unknown]
  - Psoriasis [Not Recovered/Not Resolved]
  - Cardiac failure congestive [Unknown]
  - Gait disturbance [Unknown]

NARRATIVE: CASE EVENT DATE: 2016
